FAERS Safety Report 6596545-9 (Version None)
Quarter: 2010Q1

REPORT INFORMATION
  Report Type: 
  Country: None (occurrence: None)
  Receive Date: 20100223
  Receipt Date: 20100212
  Transmission Date: 20100710
  Serious: Yes (Disabling, Other)
  Sender: FDA-Public Use
  Company Number: US-SANOFI-AVENTIS-2010SA004009

PATIENT
  Age: 66 Year
  Sex: Female
  Weight: 94 kg

DRUGS (14)
  1. LANTUS [Suspect]
     Indication: TYPE 2 DIABETES MELLITUS
     Dosage: DOSE:85 UNIT(S)
     Route: 058
     Dates: start: 20090614
  2. SOLOSTAR [Suspect]
     Indication: TYPE 2 DIABETES MELLITUS
     Dates: start: 20090101
  3. NOVOLOG [Concomitant]
  4. SERTRALINE HCL [Concomitant]
  5. GABAPENTIN [Concomitant]
  6. AGGRENOX [Concomitant]
  7. METOPROLOL TARTRATE [Concomitant]
  8. ZETIA [Concomitant]
  9. CILOSTAZOL [Concomitant]
  10. LIPITOR [Concomitant]
  11. NEXIUM [Concomitant]
  12. DESIPRAMINE [Concomitant]
  13. TEMAZEPAM [Concomitant]
  14. STOOL SOFTENER [Concomitant]

REACTIONS (6)
  - ANKLE FRACTURE [None]
  - BLOOD GLUCOSE FLUCTUATION [None]
  - FALL [None]
  - HOSPITALISATION [None]
  - HYPOGLYCAEMIA [None]
  - TIBIA FRACTURE [None]
